FAERS Safety Report 10257273 (Version 1)
Quarter: 2014Q2

REPORT INFORMATION
  Report Type: Spontaneous
  Country: US (occurrence: None)
  Receive Date: 20140623
  Receipt Date: 20140623
  Transmission Date: 20141212
  Serious: Yes (Death, Life-Threatening, Hospitalization)
  Sender: FDA-Public Use
  Company Number: None

PATIENT
  Age: 29 Year
  Sex: Female
  Weight: 83.92 kg

DRUGS (1)
  1. NUVARING [Suspect]
     Indication: CONTRACEPTION
     Dosage: 1 RING FOR 4 WEEKS 1 X 4 WEEKS VAGINAL
     Route: 067
     Dates: start: 20110305, end: 20130314

REACTIONS (21)
  - Dyspnoea [None]
  - Malaise [None]
  - Abdominal pain upper [None]
  - Diarrhoea [None]
  - Nausea [None]
  - Vomiting [None]
  - Respiratory distress [None]
  - Dyspnoea exertional [None]
  - Tachypnoea [None]
  - Renal failure acute [None]
  - Metabolic acidosis [None]
  - Hyperkalaemia [None]
  - Septic shock [None]
  - Thrombocytopenia [None]
  - Disseminated intravascular coagulation [None]
  - Ischaemic hepatitis [None]
  - Hyperglycaemia [None]
  - Acute respiratory failure [None]
  - Cardio-respiratory arrest [None]
  - Pulmonary embolism [None]
  - Thrombosis [None]
